FAERS Safety Report 8228518-4 (Version None)
Quarter: 2012Q1

REPORT INFORMATION
  Report Type: 
  Country: None (occurrence: None)
  Receive Date: 20120322
  Receipt Date: 20110511
  Transmission Date: 20120608
  Serious: No
  Sender: FDA-Public Use
  Company Number: US-BRISTOL-MYERS SQUIBB COMPANY-15739287

PATIENT
  Sex: Female

DRUGS (2)
  1. ERBITUX [Suspect]
  2. CAMPTOSAR [Suspect]

REACTIONS (2)
  - DERMATITIS ACNEIFORM [None]
  - DYSPHONIA [None]
